FAERS Safety Report 9412403 (Version 1)
Quarter: 2013Q3

REPORT INFORMATION
  Report Type: Spontaneous
  Country: US (occurrence: US)
  Receive Date: 20130722
  Receipt Date: 20130722
  Transmission Date: 20140515
  Serious: No
  Sender: FDA-Public Use
  Company Number: US-US-EMD SERONO, INC.-7143184

PATIENT
  Age: 22 Year
  Sex: Female
  Weight: 68 kg

DRUGS (4)
  1. REBIF [Suspect]
     Indication: MULTIPLE SCLEROSIS
     Route: 058
     Dates: start: 20120301, end: 20120801
  2. LORAZEPAM [Concomitant]
     Indication: INSOMNIA
     Dates: start: 20110901
  3. LORAZEPAM [Concomitant]
     Indication: ANXIETY
  4. LOESTRIN FE [Concomitant]
     Indication: CONTRACEPTION
     Dosage: 15/30

REACTIONS (5)
  - Heart rate increased [Recovering/Resolving]
  - Blood pressure diastolic increased [Recovering/Resolving]
  - Injection site erythema [Not Recovered/Not Resolved]
  - Injection site swelling [Not Recovered/Not Resolved]
  - Fatigue [Unknown]
